FAERS Safety Report 4796612-6 (Version None)
Quarter: 2005Q4

REPORT INFORMATION
  Report Type: 
  Country: None (occurrence: None)
  Receive Date: 20051007
  Receipt Date: 20050925
  Transmission Date: 20060501
  Serious: Yes (Death)
  Sender: FDA-Public Use
  Company Number: 2005S1009423

PATIENT
  Age: 20 Year
  Sex: Male

DRUGS (1)
  1. CYSTAGON [Suspect]
     Indication: CYSTINOSIS
     Dosage: 250 MG; Q6H; PO
     Route: 048

REACTIONS (16)
  - AMYOTROPHY [None]
  - ANAEMIA [None]
  - ASTHENIA [None]
  - ATROPHY [None]
  - BLOOD UREA INCREASED [None]
  - CORNEAL DEPOSITS [None]
  - CREATININE RENAL CLEARANCE DECREASED [None]
  - DIABETES MELLITUS [None]
  - DYSPHAGIA [None]
  - HYPOREFLEXIA [None]
  - HYPOTHYROIDISM [None]
  - MUSCLE ATROPHY [None]
  - PARESIS [None]
  - PNEUMONIA ASPIRATION [None]
  - SEPSIS [None]
  - TREATMENT NONCOMPLIANCE [None]
